FAERS Safety Report 24357335 (Version 1)
Quarter: 2024Q3

REPORT INFORMATION
  Report Type: Spontaneous
  Country: US (occurrence: None)
  Receive Date: 20240923
  Receipt Date: 20240923
  Transmission Date: 20241017
  Serious: Yes (Hospitalization, Disabling, Other)
  Sender: Public
  Company Number: None

PATIENT
  Age: 41 Year
  Sex: Female
  Weight: 52.2 kg

DRUGS (5)
  1. FLONASE [Suspect]
     Active Substance: FLUTICASONE PROPIONATE
     Indication: Sinusitis
     Dates: start: 20240428, end: 20240828
  2. WELLBUTRIN [Concomitant]
     Active Substance: BUPROPION HYDROCHLORIDE
  3. ATIVAN [Concomitant]
     Active Substance: LORAZEPAM
  4. NEXIUM [Concomitant]
     Active Substance: ESOMEPRAZOLE MAGNESIUM
  5. ZOFRAN [Concomitant]
     Active Substance: ONDANSETRON HYDROCHLORIDE

REACTIONS (6)
  - Anxiety [None]
  - Depression [None]
  - Panic attack [None]
  - Weight decreased [None]
  - Nausea [None]
  - Anxiety [None]

NARRATIVE: CASE EVENT DATE: 20240801
